FAERS Safety Report 19689544 (Version 7)
Quarter: 2022Q1

REPORT INFORMATION
  Report Type: Report from Study
  Country: US (occurrence: US)
  Receive Date: 20210811
  Receipt Date: 20220314
  Transmission Date: 20220424
  Serious: No
  Sender: FDA-Public Use
  Company Number: NVSC2021US178230

PATIENT
  Sex: Female

DRUGS (2)
  1. COSENTYX [Suspect]
     Active Substance: SECUKINUMAB
     Indication: Product used for unknown indication
     Dosage: UNK, UNKNOWN
     Route: 065
  2. COSENTYX [Suspect]
     Active Substance: SECUKINUMAB
     Dosage: 2 DOSAGE FORM, UNKNOWN
     Route: 065

REACTIONS (4)
  - Mycobacterium tuberculosis complex test positive [Unknown]
  - Pruritus [Unknown]
  - Psoriasis [Unknown]
  - Condition aggravated [Unknown]
